FAERS Safety Report 17237765 (Version 1)
Quarter: 2020Q1

REPORT INFORMATION
  Report Type: Spontaneous
  Country: FR (occurrence: FR)
  Receive Date: 20200106
  Receipt Date: 20200106
  Transmission Date: 20200409
  Serious: Yes (Death, Other)
  Sender: FDA-Public Use
  Company Number: FR-MYLANLABS-2020M1001491

PATIENT
  Sex: Male
  Weight: .4 kg

DRUGS (9)
  1. SPECIAFOLDINE [Suspect]
     Active Substance: FOLIC ACID
     Indication: VITAMIN SUPPLEMENTATION
     Dosage: 1 DF, ONCE DAILY (QD)
     Route: 064
     Dates: start: 20161121
  2. ORACILLINE                         /00001805/ [Suspect]
     Active Substance: PENICILLIN V BENZATHINE
     Indication: ANTIBIOTIC PROPHYLAXIS
     Dosage: 2 DF, ONCE DAILY (QD)
     Route: 064
     Dates: start: 20161220
  3. KARDEGIC [Suspect]
     Active Substance: ASPIRIN DL-LYSINE
     Indication: PROPHYLAXIS
     Dosage: 1 DF, ONCE DAILY (QD)
     Route: 064
     Dates: start: 20161126
  4. PANTOPRAZOLE [Suspect]
     Active Substance: PANTOPRAZOLE
     Indication: PROPHYLAXIS AGAINST GASTROINTESTINAL ULCER
     Dosage: 20 MG, ONCE DAILY (QD)
     Route: 064
     Dates: start: 20161121
  5. CORTANCYL [Suspect]
     Active Substance: PREDNISONE
     Dosage: 80 MG, ONCE DAILY (QD)
     Route: 064
     Dates: start: 201701
  6. MABTHERA [Suspect]
     Active Substance: RITUXIMAB
     Indication: THROMBOTIC THROMBOCYTOPENIC PURPURA
     Dosage: 2 DF, TOTAL
     Route: 064
     Dates: start: 20161207, end: 20161207
  7. ADRENALINE                         /00003903/ [Concomitant]
     Indication: PRODUCT USED FOR UNKNOWN INDICATION
     Dosage: UNK
  8. CORTANCYL [Suspect]
     Active Substance: PREDNISONE
     Indication: THROMBOTIC THROMBOCYTOPENIC PURPURA
     Dosage: 80 MG, ONCE DAILY (QD)
     Route: 064
     Dates: start: 20161118
  9. CORTANCYL [Suspect]
     Active Substance: PREDNISONE
     Dosage: 20 MG, ONCE DAILY (QD)
     Route: 064

REACTIONS (5)
  - Foetal growth restriction [Fatal]
  - Multiple organ dysfunction syndrome [Fatal]
  - Low birth weight baby [Unknown]
  - Foetal exposure during pregnancy [Recovered/Resolved]
  - Premature baby [Fatal]

NARRATIVE: CASE EVENT DATE: 20161220
